FAERS Safety Report 6913565-2 (Version None)
Quarter: 2010Q3

REPORT INFORMATION
  Report Type: 
  Country: None (occurrence: None)
  Receive Date: 20100809
  Receipt Date: 20100727
  Transmission Date: 20110219
  Serious: Yes (Death)
  Sender: FDA-Public Use
  Company Number: CY-SANOFI-AVENTIS-2010SA044401

PATIENT

DRUGS (2)
  1. RIFAMPICIN [Suspect]
  2. AZITHROMYCIN [Suspect]

REACTIONS (1)
  - DRUG INEFFECTIVE [None]
